FAERS Safety Report 5192758-1 (Version None)
Quarter: 2006Q4

REPORT INFORMATION
  Report Type: 
  Country: None (occurrence: None)
  Receive Date: 20061220
  Receipt Date: 20061204
  Transmission Date: 20070319
  Serious: Yes (Death, Hospitalization)
  Sender: FDA-Public Use
  Company Number: 2006002282

PATIENT
  Age: 64 Year
  Sex: Male

DRUGS (2)
  1. ERLOTINIB (TABLET) [Suspect]
     Indication: NON-SMALL CELL LUNG CANCER
     Dosage: 150 MG, ORAL
     Route: 048
     Dates: start: 20061016
  2. BEVACIZUMAB (INJECTION FOR INFUSION) [Suspect]
     Indication: NON-SMALL CELL LUNG CANCER
     Dosage: 960 MG, INTRAVENOUS
     Route: 042
     Dates: start: 20061016

REACTIONS (14)
  - DISEASE PROGRESSION [None]
  - GENERAL PHYSICAL HEALTH DETERIORATION [None]
  - HAEMOGLOBIN DECREASED [None]
  - INTESTINAL ISCHAEMIA [None]
  - MALIGNANT PLEURAL EFFUSION [None]
  - METASTASES TO BONE [None]
  - METASTASES TO LIVER [None]
  - PATHOLOGICAL FRACTURE [None]
  - PELVIC FRACTURE [None]
  - RECTAL HAEMORRHAGE [None]
  - RIB FRACTURE [None]
  - SMALL INTESTINAL HAEMORRHAGE [None]
  - SPINAL FRACTURE [None]
  - STERNAL FRACTURE [None]
